FAERS Safety Report 20166984 (Version 1)
Quarter: 2021Q4

REPORT INFORMATION
  Report Type: Spontaneous
  Country: KR (occurrence: None)
  Receive Date: 20211209
  Receipt Date: 20211209
  Transmission Date: 20220303
  Serious: Yes (Other)
  Sender: FDA-Public Use
  Company Number: 2021A746595

PATIENT
  Age: 988 Month
  Sex: Female
  Weight: 50 kg

DRUGS (8)
  1. TAGRISSO [Suspect]
     Active Substance: OSIMERTINIB
     Indication: Non-small cell lung cancer
     Route: 048
     Dates: start: 20200522, end: 20210721
  2. ARD S [Concomitant]
     Indication: Hypertension
     Dates: start: 2014
  3. AROBEST [Concomitant]
     Indication: Pain prophylaxis
     Dosage: 20 MG
     Dates: start: 20200521
  4. CODAEWON FORTE [Concomitant]
     Indication: Prophylaxis
     Dosage: 20 ML
     Dates: start: 20190904
  5. ILYANG DIC ETEL [Concomitant]
     Indication: Nausea
     Dosage: 50 MG
     Dates: start: 20200526
  6. HARNAL [Concomitant]
     Active Substance: TAMSULOSIN HYDROCHLORIDE
     Indication: Nephrolithiasis
     Dosage: 0.2 MG
     Dates: start: 20200527
  7. POTASSIUM CHLORIDE 20 DAEHAN [Concomitant]
     Indication: Prophylaxis
     Dosage: 20 ML (PP)
     Dates: start: 20200527
  8. TARGIN PR [Concomitant]
     Indication: Nephrolithiasis
     Dosage: 10/5 MG
     Dates: start: 20200530

REACTIONS (1)
  - Cerebral infarction [Recovering/Resolving]

NARRATIVE: CASE EVENT DATE: 20210721
